FAERS Safety Report 7435668-9 (Version None)
Quarter: 2011Q2

REPORT INFORMATION
  Report Type: 
  Country: None (occurrence: None)
  Receive Date: 20110425
  Receipt Date: 20110207
  Transmission Date: 20111010
  Serious: Yes (Hospitalization)
  Sender: FDA-Public Use
  Company Number: PHHY2011IT18074

PATIENT
  Sex: Male

DRUGS (3)
  1. XELODA [Suspect]
     Indication: GASTRIC CANCER
     Dosage: 2250 MG, UNK
     Route: 048
  2. CISPLATIN [Suspect]
     Indication: GASTRIC CANCER
     Dosage: 108 MG, CYCLIC DOSE
     Route: 042
  3. EPIRUBICIN SANDOZ [Suspect]
     Indication: GASTRIC CANCER
     Dosage: 90 MG, UNK
     Route: 042

REACTIONS (1)
  - ACUTE MYOCARDIAL INFARCTION [None]
